FAERS Safety Report 18304355 (Version 4)
Quarter: 2021Q3

REPORT INFORMATION
  Report Type: Spontaneous
  Country: US (occurrence: US)
  Receive Date: 20200923
  Receipt Date: 20210715
  Transmission Date: 20211014
  Serious: No
  Sender: FDA-Public Use
  Company Number: US-PFIZER INC-2019143365

PATIENT
  Age: 70 Year
  Sex: Female

DRUGS (3)
  1. PREMARIN [Suspect]
     Active Substance: ESTROGENS, CONJUGATED
     Dosage: ONE QUARTER APPLICATOR TWICE WEEKLY
  2. PREMARIN [Suspect]
     Active Substance: ESTROGENS, CONJUGATED
     Dosage: 0.625 MG
  3. PREMARIN [Suspect]
     Active Substance: ESTROGENS, CONJUGATED
     Dosage: 0.5 G, WEEKLY(INSERT 1/4 APPLICATOR FULL (OR 0.5 GM) VAGINALLY AT HS(BEDTIME)1 X WEEKLY)
     Route: 067

REACTIONS (7)
  - Vaginal discharge [Unknown]
  - Abdominal pain [Unknown]
  - Dyspnoea [Unknown]
  - Product physical consistency issue [Unknown]
  - Fatigue [Unknown]
  - Illness [Unknown]
  - Off label use [Unknown]
